FAERS Safety Report 9825687 (Version 1)
Quarter: 2013Q4

REPORT INFORMATION
  Report Type: Spontaneous
  Country: US (occurrence: None)
  Receive Date: 20131028
  Receipt Date: 20131028
  Transmission Date: 20140711
  Serious: Yes (Other)
  Sender: FDA-Public Use
  Company Number: 2013US002323

PATIENT
  Age: 41 Year
  Sex: Female
  Weight: 113 kg

DRUGS (4)
  1. ICLUSIG [Suspect]
     Indication: CHRONIC MYELOID LEUKAEMIA
     Route: 048
  2. LYRICA (PREGABALIN) [Concomitant]
  3. OXYMORPHONE (OXYMORPHONE) [Concomitant]
  4. FENTANYL (FENTANYL) PATCH [Concomitant]

REACTIONS (4)
  - Somnolence [None]
  - Pain in extremity [None]
  - Hypoaesthesia [None]
  - Confusional state [None]
